FAERS Safety Report 7142326-7 (Version None)
Quarter: 2010Q4

REPORT INFORMATION
  Report Type: 
  Country: None (occurrence: None)
  Receive Date: 20101207
  Receipt Date: 20101203
  Transmission Date: 20110411
  Serious: Yes (Hospitalization, Disabling, Other)
  Sender: FDA-Public Use
  Company Number: US-PFIZER INC-2010110316

PATIENT
  Sex: Female

DRUGS (1)
  1. CHANTIX [Suspect]
     Indication: SMOKING CESSATION THERAPY
     Dosage: UNK
     Dates: start: 20080601, end: 20080701

REACTIONS (7)
  - ANXIETY [None]
  - BIPOLAR DISORDER [None]
  - CONVULSION [None]
  - HALLUCINATION [None]
  - HOMICIDAL IDEATION [None]
  - MENTAL DISORDER [None]
  - SUICIDAL IDEATION [None]
